FAERS Safety Report 6394262 (Version 12)
Quarter: 2014Q1

REPORT INFORMATION
  Report Type: Spontaneous
  Country: US (occurrence: US)
  Receive Date: 20070830
  Receipt Date: 20140127
  Transmission Date: 20141002
  Serious: Yes (Hospitalization, Other)
  Sender: FDA-Public Use
  Company Number: PHEH2007US11514

PATIENT
  Age: 68 Year
  Sex: Female

DRUGS (31)
  1. AREDIA [Suspect]
  2. ZOMETA [Suspect]
  3. THALIDOMIDE [Suspect]
     Indication: PLASMA CELL MYELOMA
     Dosage: 400 MG
  4. PAXIL [Concomitant]
     Dosage: 200 MG
  5. PREMARIN                                /NEZ/ [Concomitant]
     Dosage: .625 MG
  6. VALIUM [Concomitant]
     Dosage: 5 MG
  7. SYNTHROID [Concomitant]
     Dosage: .1 MG
  8. CLINDAMYCIN [Concomitant]
     Dosage: 150 MG
  9. FUROSEMIDE [Concomitant]
     Dosage: 20 MG
  10. BLOOD AND RELATED PRODUCTS [Concomitant]
     Dates: start: 20011224
  11. DECADRON                                /CAN/ [Concomitant]
  12. AVELOX [Concomitant]
  13. VIOXX [Concomitant]
  14. IBUPROFEN [Concomitant]
  15. ACETAMINOPHEN [Concomitant]
  16. PEPCID COMPLETE [Concomitant]
  17. ZOFRAN [Concomitant]
  18. LORTAB [Concomitant]
  19. NALDECON [Concomitant]
  20. LOPERAMIDE HYDROCHLORIDE [Concomitant]
  21. PROCRIT                            /00909301/ [Concomitant]
     Route: 065
  22. MELPHALAN [Concomitant]
  23. PREDNISONE [Concomitant]
  24. ACYCLOVIR [Concomitant]
  25. MULTIVITAMINS, PLAIN [Concomitant]
  26. CHROMAGEN [Concomitant]
  27. OXYCODONE [Concomitant]
  28. BENADRYL ^WARNER-LAMBERT^               /USA/ [Concomitant]
  29. LEVOTHYROXINE [Concomitant]
  30. DIAZEPAM [Concomitant]
  31. PAROXETINE [Concomitant]

REACTIONS (69)
  - Retinal detachment [Unknown]
  - Neuropathy peripheral [Unknown]
  - Hypoaesthesia [Unknown]
  - Hypothyroidism [Unknown]
  - Osteoarthritis [Unknown]
  - Intervertebral disc disorder [Unknown]
  - Back pain [Unknown]
  - Musculoskeletal discomfort [Unknown]
  - Chest pain [Unknown]
  - Dyspnoea [Unknown]
  - Osteonecrosis of jaw [Unknown]
  - Pain [Unknown]
  - Injury [Unknown]
  - Anxiety [Unknown]
  - Anhedonia [Unknown]
  - Disability [Unknown]
  - Osteomyelitis [Unknown]
  - Fistula [Unknown]
  - Fatigue [Unknown]
  - Asthenia [Unknown]
  - Oestrogen deficiency [Unknown]
  - Herpes zoster [Unknown]
  - Abscess [Unknown]
  - Pain in jaw [Unknown]
  - Swelling [Unknown]
  - Bone disorder [Unknown]
  - Musculoskeletal chest pain [Unknown]
  - Headache [Unknown]
  - Tremor [Unknown]
  - Rib fracture [Unknown]
  - Thyroid mass [Unknown]
  - Gastric disorder [Unknown]
  - Secondary sequestrum [Unknown]
  - Supraventricular tachycardia [Unknown]
  - Goitre [Unknown]
  - Cataract nuclear [Unknown]
  - Sinus disorder [Unknown]
  - Dry eye [Recovering/Resolving]
  - Arthralgia [Unknown]
  - Malignant melanoma [Unknown]
  - Atelectasis [Unknown]
  - Aortic arteriosclerosis [Unknown]
  - Aortic calcification [Unknown]
  - Spinal osteoarthritis [Unknown]
  - Pleural effusion [Unknown]
  - Haemothorax [Unknown]
  - Fall [Unknown]
  - Wrist fracture [Unknown]
  - Scoliosis [Unknown]
  - Phlebolith [Unknown]
  - Cutis laxa [Unknown]
  - Blindness [Unknown]
  - Subdural hygroma [Unknown]
  - Ulna fracture [Unknown]
  - Foot fracture [Unknown]
  - Dizziness [Unknown]
  - Insomnia [Unknown]
  - Deafness [Unknown]
  - Wound [Unknown]
  - Seasonal allergy [Unknown]
  - Bone fragmentation [Unknown]
  - Pulmonary mass [Unknown]
  - Pain in extremity [Unknown]
  - Arthritis [Unknown]
  - Foot deformity [Unknown]
  - Intervertebral disc degeneration [Unknown]
  - Radius fracture [Unknown]
  - Epiphyseal fracture [Unknown]
  - Arteriosclerosis [Unknown]
